FAERS Safety Report 5831255-4 (Version None)
Quarter: 2008Q3

REPORT INFORMATION
  Report Type: 
  Country: None (occurrence: None)
  Receive Date: 20080801
  Receipt Date: 20080722
  Transmission Date: 20090109
  Serious: Yes (Other)
  Sender: FDA-Public Use
  Company Number: US-PFIZER INC-2008061317

PATIENT
  Sex: Female
  Weight: 75 kg

DRUGS (4)
  1. AROMASIN [Suspect]
     Indication: BREAST CANCER
     Route: 048
     Dates: start: 20080623, end: 20080701
  2. LIPITOR [Concomitant]
  3. DIOVAN [Concomitant]
  4. CLONIDINE [Concomitant]

REACTIONS (1)
  - VISUAL ACUITY REDUCED [None]
